FAERS Safety Report 5475939-9 (Version None)
Quarter: 2007Q4

REPORT INFORMATION
  Report Type: 
  Country: None (occurrence: None)
  Receive Date: 20071003
  Receipt Date: 20070919
  Transmission Date: 20080405
  Serious: Yes (Hospitalization)
  Sender: FDA-Public Use
  Company Number: DE-ELI_LILLY_AND_COMPANY-DE200709004411

PATIENT
  Age: 26 Year
  Sex: Female

DRUGS (3)
  1. FORTEO [Suspect]
     Indication: OSTEOPOROSIS
     Dosage: 20 UG, UNK
     Route: 058
     Dates: start: 20070901
  2. NOVAMIN [Concomitant]
     Dosage: UNK, UNK
     Dates: start: 20070801
  3. IBUPROFEN [Concomitant]
     Dates: start: 20070801

REACTIONS (5)
  - AURICULAR SWELLING [None]
  - BLISTER [None]
  - ERYTHEMA [None]
  - PRURITUS [None]
  - SWELLING FACE [None]
